FAERS Safety Report 5465775-1 (Version None)
Quarter: 2007Q3

REPORT INFORMATION
  Report Type: 
  Country: None (occurrence: None)
  Receive Date: 20070924
  Receipt Date: 20070914
  Transmission Date: 20080115
  Serious: Yes (Other)
  Sender: FDA-Public Use
  Company Number: B0487375A

PATIENT
  Sex: Female

DRUGS (4)
  1. LAMOTRIGINE [Suspect]
     Indication: EPILEPSY
     Dosage: 400MG PER DAY
     Dates: start: 19950101, end: 20061212
  2. TOPAMAX [Suspect]
     Dosage: 420MG PER DAY
  3. LYRICA [Suspect]
     Dosage: 600MG PER DAY
  4. ELTHYRONE [Suspect]
     Dosage: 100MG PER DAY

REACTIONS (5)
  - DRUG EXPOSURE DURING PREGNANCY [None]
  - EXTRASYSTOLES [None]
  - FOETAL HEART RATE ABNORMAL [None]
  - GROWTH RETARDATION [None]
  - VENTRICULAR SEPTAL DEFECT [None]
